FAERS Safety Report 6049650-X (Version None)
Quarter: 2009Q1

REPORT INFORMATION
  Report Type: 
  Country: None (occurrence: None)
  Receive Date: 20090124
  Receipt Date: 20090112
  Transmission Date: 20090719
  Serious: Yes (Other)
  Sender: FDA-Public Use
  Company Number: CZ-PFIZER INC-2009154022

PATIENT
  Age: 30 Year
  Sex: Male

DRUGS (5)
  1. METHYLPREDNISOLONE ACETATE AND METHYLPREDNISOLONE SODIUM SUCCINATE AND [Suspect]
  2. CYCLOPHOSPHAMIDE [Suspect]
     Route: 042
  3. MESNA [Concomitant]
  4. LANSOPRAZOLE [Concomitant]
  5. NIMESULIDE [Concomitant]

REACTIONS (1)
  - SYSTEMIC LUPUS ERYTHEMATOSUS [None]
